FAERS Safety Report 8015351-1 (Version None)
Quarter: 2011Q4

REPORT INFORMATION
  Report Type: 
  Country: None (occurrence: None)
  Receive Date: 20111230
  Receipt Date: 20111216
  Transmission Date: 20120403
  Serious: Yes (Death, Life-Threatening)
  Sender: FDA-Public Use
  Company Number: FR-RANBAXY-2011RR-51323

PATIENT
  Age: 62 Year
  Sex: Female

DRUGS (16)
  1. VALACICLOVIR [Suspect]
     Indication: PRODUCT USED FOR UNKNOWN INDICATION
     Dosage: 1 G / DAY
     Route: 048
     Dates: start: 20110106, end: 20110117
  2. FLUCONAZOLE [Concomitant]
     Indication: PRODUCT USED FOR UNKNOWN INDICATION
     Dosage: UNK
     Route: 065
     Dates: start: 20110106, end: 20110204
  3. AUGMENTIN [Suspect]
     Indication: FEBRILE BONE MARROW APLASIA
     Dosage: 1 G, TID
     Route: 048
     Dates: start: 20110129, end: 20110204
  4. VALACICLOVIR [Suspect]
     Dosage: 1 G / DAY
     Dates: start: 20110208, end: 20110217
  5. AMLODIPINE BESYLATE [Suspect]
     Indication: PRODUCT USED FOR UNKNOWN INDICATION
     Dosage: 10 MG / DAY
     Route: 048
     Dates: start: 20110205, end: 20110214
  6. VANCOMYCIN [Concomitant]
     Indication: PRODUCT USED FOR UNKNOWN INDICATION
     Dosage: UNK
     Route: 065
     Dates: start: 20110124, end: 20110220
  7. AUGMENTIN [Suspect]
     Dosage: UNK
     Route: 042
     Dates: start: 20110208, end: 20110209
  8. LEVOFLOXACIN [Suspect]
     Indication: LUNG DISORDER
     Dosage: 1 G / DAY
     Route: 048
     Dates: start: 20110207, end: 20110215
  9. CEFTRIAXONE [Suspect]
     Indication: LUNG DISORDER
     Dosage: 1 G / DAY
     Route: 042
     Dates: start: 20110209, end: 20110212
  10. PERINDOPRIL ERBUMINE [Suspect]
     Indication: CARDIAC FAILURE
     Dosage: 20 MG / DAY
     Route: 048
     Dates: start: 20110206, end: 20110217
  11. LASIX [Concomitant]
     Indication: PRODUCT USED FOR UNKNOWN INDICATION
     Dosage: UNK
     Route: 065
     Dates: start: 20110131
  12. FLAGYL [Concomitant]
     Indication: PRODUCT USED FOR UNKNOWN INDICATION
     Dosage: UNK
     Route: 065
     Dates: start: 20110118, end: 20110217
  13. BISOPROLOL FUMARATE [Concomitant]
     Indication: PRODUCT USED FOR UNKNOWN INDICATION
     Dosage: UNK
     Route: 048
     Dates: start: 20110205
  14. VALACYCLOVIR HYDROCHLORIDE [Concomitant]
     Indication: PRODUCT USED FOR UNKNOWN INDICATION
     Route: 065
  15. VALACICLOVIR [Suspect]
     Dosage: 1 G / DAY
     Route: 048
     Dates: start: 20110201, end: 20110204
  16. ALDACTONE [Suspect]
     Indication: CARDIAC FAILURE
     Dosage: 50 MG / DAY
     Route: 048
     Dates: start: 20110205, end: 20110216

REACTIONS (9)
  - HEPATITIS CHOLESTATIC [None]
  - PYREXIA [None]
  - RENAL FAILURE [None]
  - RASH PAPULAR [None]
  - DRUG RASH WITH EOSINOPHILIA AND SYSTEMIC SYMPTOMS [None]
  - CARDIAC FAILURE [None]
  - EOSINOPHILIA [None]
  - ACUTE GRAFT VERSUS HOST DISEASE [None]
  - GASTROINTESTINAL HAEMORRHAGE [None]
